FAERS Safety Report 20575959 (Version 14)
Quarter: 2023Q1

REPORT INFORMATION
  Report Type: Report from Study
  Country: US (occurrence: US)
  Receive Date: 20220310
  Receipt Date: 20230123
  Transmission Date: 20230417
  Serious: Yes (Hospitalization, Other)
  Sender: FDA-Public Use
  Company Number: US-TAKEDA-2022TUS005779

PATIENT
  Age: 85 Year
  Sex: Female
  Weight: 56 kg

DRUGS (20)
  1. MOBOCERTINIB [Suspect]
     Active Substance: MOBOCERTINIB
     Indication: Lung neoplasm malignant
     Dosage: 80 MILLIGRAM, QD
     Route: 065
     Dates: start: 20220120
  2. MOBOCERTINIB [Suspect]
     Active Substance: MOBOCERTINIB
     Dosage: 160 MILLIGRAM, QD
     Route: 065
     Dates: start: 20220122
  3. MOBOCERTINIB [Suspect]
     Active Substance: MOBOCERTINIB
     Dosage: 120 MILLIGRAM, QD
     Route: 065
     Dates: start: 20220131
  4. MOBOCERTINIB [Suspect]
     Active Substance: MOBOCERTINIB
     Dosage: 80 MILLIGRAM, QD
     Route: 065
     Dates: start: 20220228, end: 20220328
  5. MOBOCERTINIB [Suspect]
     Active Substance: MOBOCERTINIB
     Dosage: 160 MILLIGRAM, QD
     Route: 065
  6. MOBOCERTINIB [Suspect]
     Active Substance: MOBOCERTINIB
     Dosage: 80 MILLIGRAM, QD
     Route: 065
  7. LEVOTHYROXINE [Concomitant]
     Active Substance: LEVOTHYROXINE
     Indication: Thyroid disorder
     Dosage: UNK
     Route: 065
  8. PANTOPRAZOLE [Concomitant]
     Active Substance: PANTOPRAZOLE
     Dosage: UNK
     Route: 065
  9. METOPROLOL [Concomitant]
     Active Substance: METOPROLOL
     Dosage: UNK
     Route: 065
  10. FUROSEMIDE [Concomitant]
     Active Substance: FUROSEMIDE
     Dosage: UNK
     Route: 065
  11. ALLOPURINOL [Concomitant]
     Active Substance: ALLOPURINOL
     Dosage: UNK
     Route: 065
  12. ATORVASTATIN [Concomitant]
     Active Substance: ATORVASTATIN
     Dosage: UNK
     Route: 065
  13. ASPIRIN [Concomitant]
     Active Substance: ASPIRIN
     Dosage: UNK
     Route: 065
  14. LATANOPROST [Concomitant]
     Active Substance: LATANOPROST
     Indication: Glaucoma
     Dosage: UNK
     Route: 065
  15. LOSARTAN [Concomitant]
     Active Substance: LOSARTAN
     Dosage: UNK
     Route: 065
  16. ALBUTEROL [Concomitant]
     Active Substance: ALBUTEROL
     Dosage: UNK
     Route: 065
  17. VITAMINS [Concomitant]
     Active Substance: VITAMINS
     Dosage: UNK
     Route: 065
  18. CALTRATE [Concomitant]
     Active Substance: CALCIUM CARBONATE
     Dosage: UNK
     Route: 065
  19. VALSARTAN [Concomitant]
     Active Substance: VALSARTAN
     Dosage: UNK
     Route: 065
  20. OXYGEN [Concomitant]
     Active Substance: OXYGEN
     Dosage: UNK

REACTIONS (27)
  - Internal haemorrhage [Unknown]
  - Pneumonia [Unknown]
  - COVID-19 [Unknown]
  - Diarrhoea [Unknown]
  - Haemorrhage [Unknown]
  - Weight decreased [Not Recovered/Not Resolved]
  - Headache [Recovered/Resolved]
  - Drug intolerance [Unknown]
  - Body height decreased [Not Recovered/Not Resolved]
  - Ear disorder [Not Recovered/Not Resolved]
  - Eye disorder [Unknown]
  - Rhinalgia [Recovering/Resolving]
  - Chapped lips [Unknown]
  - Lip dry [Unknown]
  - Urinary tract infection [Recovered/Resolved]
  - Epistaxis [Unknown]
  - Peripheral swelling [Unknown]
  - Asthenia [Unknown]
  - Drug eruption [Unknown]
  - Nasopharyngitis [Unknown]
  - Rash pruritic [Not Recovered/Not Resolved]
  - Rhinorrhoea [Unknown]
  - Hypoacusis [Unknown]
  - Eye discharge [Unknown]
  - Product administration error [Unknown]
  - Inappropriate schedule of product administration [Unknown]
  - Product dose omission issue [Unknown]

NARRATIVE: CASE EVENT DATE: 20220122
